FAERS Safety Report 23865532 (Version 1)
Quarter: 2024Q2

REPORT INFORMATION
  Report Type: Spontaneous
  Country: GB (occurrence: GB)
  Receive Date: 20240517
  Receipt Date: 20240517
  Transmission Date: 20240716
  Serious: Yes (Other)
  Sender: FDA-Public Use
  Company Number: GB-MHRA-TPP62084679C10765857YC1713373200778

PATIENT
  Age: 53 Year
  Sex: Female
  Weight: 102 kg

DRUGS (11)
  1. METRONIDAZOLE [Suspect]
     Active Substance: METRONIDAZOLE
     Indication: Ill-defined disorder
     Dosage: UNK
     Route: 065
     Dates: start: 20240415
  2. AMITRIPTYLINE HYDROCHLORIDE [Concomitant]
     Active Substance: AMITRIPTYLINE HYDROCHLORIDE
     Indication: Ill-defined disorder
     Dosage: DOSAGE TEXT:ONE NIGHT
     Route: 065
     Dates: start: 20000404
  3. APIXABAN [Concomitant]
     Active Substance: APIXABAN
     Indication: Ill-defined disorder
     Dosage: DOSAGE TEXT:ONE TO BE TAKEN TWICE A DAY IDEALLY EVERY 10
     Route: 065
     Dates: start: 20220223
  4. CEFACLOR [Concomitant]
     Active Substance: CEFACLOR
     Indication: Ill-defined disorder
     Dosage: DOSAGE TEXT:TAKE ONE TWICE DAILY
     Route: 065
     Dates: start: 19991001
  5. ACETAMINOPHEN\PROPOXYPHENE HYDROCHLORIDE [Concomitant]
     Active Substance: ACETAMINOPHEN\PROPOXYPHENE HYDROCHLORIDE
     Indication: Ill-defined disorder
     Dosage: UNK,TAKE 1 OR 2, UP TO QID
     Route: 065
     Dates: start: 19950201
  6. EPIPEN [Concomitant]
     Active Substance: EPINEPHRINE
     Indication: Ill-defined disorder
     Dosage: DOSAGE TEXT:USE AS DIRECTED IF SYMPTOMS OF ANAPHYLAXIS
     Route: 065
     Dates: start: 20230614
  7. MOMETASONE [Concomitant]
     Active Substance: MOMETASONE
     Indication: Ill-defined disorder
     Dosage: DOSAGE TEXT:TWO SPRAYS TO BE USED IN EACH NOSTRIL TWICE A D
     Route: 065
     Dates: start: 20240119
  8. OMEPRAZOLE [Concomitant]
     Active Substance: DONEPEZIL HYDROCHLORIDE\OMEPRAZOLE\OMEPRAZOLE MAGNESIUM
     Indication: Ill-defined disorder
     Dosage: DOSAGE TEXT: TAKE ONE DAILY
     Route: 065
     Dates: start: 20000626
  9. PROCHLORPERAZINE [Concomitant]
     Active Substance: PROCHLORPERAZINE
     Indication: Ill-defined disorder
     Dosage: DOSAGE TEXT: ONE TO BE TAKEN NIGHT
     Route: 065
     Dates: start: 20190926
  10. SERTRALINE [Concomitant]
     Active Substance: SERTRALINE HYDROCHLORIDE
     Indication: Ill-defined disorder
     Dosage: DOSAGE TEXT: TWO TO BE TAKEN DAILY
     Route: 065
     Dates: start: 20190430
  11. TEMAZEPAM [Concomitant]
     Active Substance: TEMAZEPAM
     Indication: Ill-defined disorder
     Dosage: DOSAGE TEXT: TAKE ONE AT NIGHT
     Route: 065
     Dates: start: 20000313

REACTIONS (1)
  - Swelling [Recovered/Resolved]

NARRATIVE: CASE EVENT DATE: 20240417
